FAERS Safety Report 7735569-2 (Version None)
Quarter: 2011Q3

REPORT INFORMATION
  Report Type: 
  Country: None (occurrence: None)
  Receive Date: 20110907
  Receipt Date: 20110823
  Transmission Date: 20111222
  Serious: Yes (Death, Hospitalization, Other)
  Sender: FDA-Public Use
  Company Number: US-WATSON-2011-14088

PATIENT
  Age: 23 Year
  Sex: Male

DRUGS (7)
  1. DOXORUBICIN HCL [Suspect]
     Indication: HODGKIN'S DISEASE
     Dosage: UNK
  2. IFOSFAMIDE [Suspect]
     Indication: HODGKIN'S DISEASE
     Dosage: UNK
  3. BLEOMYCIN SULFATE [Suspect]
     Indication: HODGKIN'S DISEASE
     Dosage: UNK
  4. DACARBAZINE [Suspect]
     Indication: HODGKIN'S DISEASE
     Dosage: UNK
  5. CARBOPLATIN [Suspect]
     Indication: HODGKIN'S DISEASE
     Dosage: UNK
  6. ETOPOSIDE [Suspect]
     Indication: HODGKIN'S DISEASE
     Dosage: UNK
  7. VINBLASTINE SULFATE [Suspect]
     Indication: HODGKIN'S DISEASE
     Dosage: UNK

REACTIONS (5)
  - HYPOXIA [None]
  - INTERSTITIAL LUNG DISEASE [None]
  - DYSPNOEA [None]
  - RIGHT VENTRICULAR FAILURE [None]
  - PNEUMONITIS [None]
